FAERS Safety Report 10435870 (Version 1)
Quarter: 2014Q3

REPORT INFORMATION
  Report Type: Spontaneous
  Country: US (occurrence: US)
  Receive Date: 20140908
  Receipt Date: 20140908
  Transmission Date: 20150326
  Serious: No
  Sender: FDA-Public Use
  Company Number: US-GLAXOSMITHKLINE-A1074044A

PATIENT
  Age: 73 Year
  Sex: Female

DRUGS (5)
  1. UNSPECIFIED MEDICATIONS [Concomitant]
     Active Substance: UNSPECIFIED INGREDIENT
  2. MUCINEX [Concomitant]
     Active Substance: GUAIFENESIN
  3. BREO ELLIPTA [Suspect]
     Active Substance: FLUTICASONE FUROATE\VILANTEROL TRIFENATATE
     Indication: ASTHMA
     Dosage: 1PUFF PER DAY
     Route: 055
     Dates: start: 201404, end: 201405
  4. SULFUR. [Concomitant]
     Active Substance: SULFUR
  5. ANTIBIOTIC [Concomitant]
     Active Substance: UNSPECIFIED INGREDIENT

REACTIONS (9)
  - Secretion discharge [Unknown]
  - Ill-defined disorder [Unknown]
  - Pyrexia [Unknown]
  - Off label use [Unknown]
  - Chills [Unknown]
  - Cough [Unknown]
  - Dyspnoea [Recovered/Resolved]
  - Malaise [Unknown]
  - Drug ineffective [Unknown]

NARRATIVE: CASE EVENT DATE: 201404
